FAERS Safety Report 5362393-0 (Version None)
Quarter: 2007Q2

REPORT INFORMATION
  Report Type: 
  Country: None (occurrence: None)
  Receive Date: 20070619
  Receipt Date: 20050804
  Transmission Date: 20071010
  Serious: Yes (Hospitalization, Disabling)
  Sender: FDA-Public Use
  Company Number: CA-ASTRAZENECA-2005UW00798

PATIENT
  Age: 898 Month
  Sex: Male

DRUGS (9)
  1. ZD1839 [Suspect]
     Indication: NON-SMALL CELL LUNG CANCER
     Dates: start: 20041208, end: 20050127
  2. ATARAX [Concomitant]
     Indication: RASH PRURITIC
     Route: 048
     Dates: start: 20041222
  3. HYDROCORTISONE [Concomitant]
     Indication: RASH PRURITIC
     Dates: start: 20041228
  4. VITAMIN CAP [Concomitant]
  5. ADALAT [Concomitant]
     Indication: HYPERTENSION
     Route: 048
     Dates: start: 19990801
  6. ALTACE [Concomitant]
     Indication: HYPERTENSION
     Route: 048
     Dates: start: 19990801
  7. LESCOL [Concomitant]
     Indication: HYPERCHOLESTEROLAEMIA
     Route: 048
     Dates: start: 19990401
  8. LASIX [Concomitant]
     Indication: DIURETIC THERAPY
     Route: 048
     Dates: start: 19990801
  9. METFORMIN HCL [Concomitant]
     Indication: DIABETES MELLITUS
     Route: 048
     Dates: start: 20000421

REACTIONS (1)
  - DERMATOMYOSITIS [None]
